FAERS Safety Report 6854937-4 (Version None)
Quarter: 2010Q3

REPORT INFORMATION
  Report Type: 
  Country: None (occurrence: None)
  Receive Date: 20100717
  Receipt Date: 20080310
  Transmission Date: 20110219
  Serious: Yes (Other)
  Sender: FDA-Public Use
  Company Number: US-PFIZER INC-2007099872

PATIENT
  Sex: Female
  Weight: 65.8 kg

DRUGS (7)
  1. CHANTIX [Suspect]
     Indication: SMOKING CESSATION THERAPY
     Route: 048
     Dates: start: 20071029, end: 20071109
  2. WELLBUTRIN [Concomitant]
  3. LEXAPRO [Concomitant]
  4. LORTAB [Concomitant]
  5. ACIPHEX [Concomitant]
  6. ZYRTEC [Concomitant]
     Indication: HYPERSENSITIVITY
  7. FIORICET [Concomitant]
     Indication: MIGRAINE

REACTIONS (7)
  - ASTHENIA [None]
  - DEPRESSION [None]
  - FEELING ABNORMAL [None]
  - HALLUCINATION, VISUAL [None]
  - INCOHERENT [None]
  - INSOMNIA [None]
  - SUICIDAL IDEATION [None]
